FAERS Safety Report 15759956 (Version 1)
Quarter: 2018Q4

REPORT INFORMATION
  Report Type: Spontaneous
  Country: US (occurrence: US)
  Receive Date: 20181226
  Receipt Date: 20181226
  Transmission Date: 20190205
  Serious: Yes (Life-Threatening, Hospitalization, Other)
  Sender: FDA-Public Use
  Company Number: US-AUROBINDO-AUR-APL-2018-060145

PATIENT
  Age: 33 Year
  Sex: Female

DRUGS (1)
  1. DIVALPROEX [Suspect]
     Active Substance: DIVALPROEX SODIUM
     Indication: SEIZURE
     Dosage: UNK, PATIENT TOOK A 1 MONTH?S SUPPLY OF VPA ALL AT ONCE
     Route: 065

REACTIONS (12)
  - Sinus tachycardia [Recovered/Resolved]
  - Intentional overdose [Recovered/Resolved]
  - Coma [Recovered/Resolved]
  - Pancytopenia [Recovered/Resolved]
  - Toxicity to various agents [Recovered/Resolved]
  - Metabolic encephalopathy [Recovered/Resolved]
  - Hypothermia [Recovered/Resolved]
  - Electrocardiogram QT prolonged [Recovered/Resolved]
  - Hypernatraemia [Recovered/Resolved]
  - Hypocalcaemia [Recovered/Resolved]
  - Tachyarrhythmia [Recovered/Resolved]
  - Hypotension [Recovered/Resolved]
